FAERS Safety Report 5476050-3 (Version None)
Quarter: 2007Q4

REPORT INFORMATION
  Report Type: 
  Country: None (occurrence: None)
  Receive Date: 20071003
  Receipt Date: 20070926
  Transmission Date: 20080405
  Serious: Yes (Hospitalization, Other)
  Sender: FDA-Public Use
  Company Number: PHBS2007BR16037

PATIENT
  Sex: Female

DRUGS (1)
  1. FEMARA [Suspect]
     Dosage: 2.5 MG/DAY
     Route: 048
     Dates: start: 20070201

REACTIONS (3)
  - ACCIDENT [None]
  - ANKLE FRACTURE [None]
  - ANKLE OPERATION [None]
